FAERS Safety Report 19622631 (Version 1)
Quarter: 2021Q3

REPORT INFORMATION
  Report Type: Spontaneous
  Country: AT (occurrence: AT)
  Receive Date: 20210728
  Receipt Date: 20210728
  Transmission Date: 20211014
  Serious: Yes (Other)
  Sender: FDA-Public Use
  Company Number: AT-MYLANLABS-2021M1045998

PATIENT
  Age: 32 Year
  Sex: Female

DRUGS (10)
  1. DIPROGENTA [Concomitant]
     Active Substance: BETAMETHASONE DIPROPIONATE\GENTAMICIN SULFATE
     Dosage: UNK
  2. DIPROFORTE [Concomitant]
     Dosage: UNK
  3. APREDNISLON [Concomitant]
     Active Substance: PREDNISOLONE
     Dosage: UNK
  4. BETAISODONA [Concomitant]
     Active Substance: POVIDONE-IODINE
     Dosage: UNK
  5. ELOCON [Concomitant]
     Active Substance: MOMETASONE FUROATE
     Dosage: UNK
  6. ADALIMUMAB [Suspect]
     Active Substance: ADALIMUMAB
     Indication: PRODUCT USED FOR UNKNOWN INDICATION
     Dosage: UNK
     Dates: start: 201911, end: 202007
  7. REFOBACIN [Concomitant]
     Active Substance: GENTAMICIN SULFATE
     Dosage: UNK
  8. PROTOPIC [Concomitant]
     Active Substance: TACROLIMUS
     Dosage: UNK
  9. METHOTREXATE. [Concomitant]
     Active Substance: METHOTREXATE
     Dosage: UNK
  10. TANNOSYNT [Concomitant]
     Dosage: UNK

REACTIONS (1)
  - Drug ineffective [Unknown]
